FAERS Safety Report 5350734-X (Version None)
Quarter: 2007Q2

REPORT INFORMATION
  Report Type: 
  Country: None (occurrence: None)
  Receive Date: 20070606
  Receipt Date: 20070606
  Transmission Date: 20071010
  Serious: Yes (Life-Threatening, Hospitalization)
  Sender: FDA-Public Use
  Company Number: None

PATIENT
  Age: 69 Year
  Sex: Female
  Weight: 109.2 kg

DRUGS (2)
  1. OSMOPREP [Suspect]
     Indication: BOWEL PREPARATION
     Dates: start: 20070523, end: 20070523
  2. OSMOPREP [Suspect]
     Indication: COLONOSCOPY
     Dates: start: 20070523, end: 20070523

REACTIONS (27)
  - ANAEMIA [None]
  - ANURIA [None]
  - BACK PAIN [None]
  - CALCINOSIS [None]
  - CONSTIPATION [None]
  - DECUBITUS ULCER [None]
  - DYSLIPIDAEMIA [None]
  - DYSPEPSIA [None]
  - FALL [None]
  - HAEMATOCHEZIA [None]
  - HAEMORRHOIDS [None]
  - HYPERPHOSPHATAEMIA [None]
  - HYPERTENSION [None]
  - HYPOCALCAEMIA [None]
  - INSOMNIA [None]
  - INTESTINAL POLYP [None]
  - MICROCYTIC ANAEMIA [None]
  - MICROCYTOSIS [None]
  - MULTIPLE SCLEROSIS [None]
  - NEPHROPATHY [None]
  - NEUROGENIC BLADDER [None]
  - PARAPLEGIA [None]
  - PARESIS [None]
  - POLYDIPSIA [None]
  - RENAL TUBULAR DISORDER [None]
  - RENAL TUBULAR NECROSIS [None]
  - THIRST [None]
